FAERS Safety Report 23031884 (Version 3)
Quarter: 2023Q4

REPORT INFORMATION
  Report Type: Spontaneous
  Country: US (occurrence: US)
  Receive Date: 20231005
  Receipt Date: 20231214
  Transmission Date: 20240109
  Serious: Yes (Disabling, Other)
  Sender: FDA-Public Use
  Company Number: US-002147023-NVSC2023US212457

PATIENT
  Sex: Female

DRUGS (1)
  1. COSENTYX [Suspect]
     Active Substance: SECUKINUMAB
     Indication: Product used for unknown indication
     Dosage: UNK UNK, QW
     Route: 058

REACTIONS (3)
  - Arthritis [Unknown]
  - Myocardial infarction [Unknown]
  - Mass [Unknown]
